FAERS Safety Report 6928467-5 (Version None)
Quarter: 2010Q3

REPORT INFORMATION
  Report Type: 
  Country: None (occurrence: None)
  Receive Date: 20100817
  Receipt Date: 20100806
  Transmission Date: 20110219
  Serious: Yes (Other)
  Sender: FDA-Public Use
  Company Number: US-PFIZER INC-2010100425

PATIENT
  Sex: Male
  Weight: 95.238 kg

DRUGS (4)
  1. GEODON [Suspect]
     Indication: SCHIZOPHRENIA
     Dosage: 160 MG, DAILY
     Dates: start: 20100701
  2. PRISTIQ [Suspect]
     Indication: DEPRESSION
     Dosage: 50 MG, DAILY
     Dates: start: 20100101, end: 20100701
  3. ULTRAM [Concomitant]
     Indication: BACK PAIN
     Dosage: UNK
  4. DIOVAN HCT [Concomitant]
     Indication: HYPERTENSION
     Dosage: UNK

REACTIONS (4)
  - BLOOD URINE PRESENT [None]
  - CHOKING [None]
  - SEROTONIN SYNDROME [None]
  - WRONG TECHNIQUE IN DRUG USAGE PROCESS [None]
